FAERS Safety Report 6491295-1 (Version None)
Quarter: 2009Q4

REPORT INFORMATION
  Report Type: 
  Country: None (occurrence: None)
  Receive Date: 20091211
  Receipt Date: 20091207
  Transmission Date: 20100525
  Serious: Yes (Death)
  Sender: FDA-Public Use
  Company Number: PHEH2009US15813

PATIENT
  Sex: Female
  Weight: 77 kg

DRUGS (8)
  1. TASIGNA [Suspect]
     Indication: CHRONIC MYELOID LEUKAEMIA
     Dosage: 400 MG, BID
     Dates: start: 20090403, end: 20090406
  2. TASIGNA [Suspect]
     Dosage: 200 MG, BID
     Dates: start: 20090427, end: 20090508
  3. TASIGNA [Suspect]
     Dosage: 200 MG, BID
     Dates: start: 20090613, end: 20090629
  4. TASIGNA [Suspect]
     Dosage: 200 MG, BID
     Dates: start: 20090818, end: 20090908
  5. TASIGNA [Suspect]
     Dosage: 200 MG, QD
     Dates: start: 20090929, end: 20091026
  6. NEUMEGA [Concomitant]
     Indication: THROMBOCYTOPENIA
     Dosage: 10 MCG/KG THREE TIMES WEEKLY
     Dates: start: 20090921, end: 20091024
  7. NEUMEGA [Concomitant]
     Dosage: 20 MCG/KG THREE TIMES WEEKLY
     Dates: start: 20091005, end: 20091026
  8. ARANESP [Concomitant]
     Indication: ANAEMIA
     Dosage: 0.45 MCG/KG EVERY 3 WEEKS
     Dates: start: 20090706, end: 20091016

REACTIONS (5)
  - ACUTE RESPIRATORY DISTRESS SYNDROME [None]
  - DRUG INEFFECTIVE [None]
  - H1N1 INFLUENZA [None]
  - MECHANICAL VENTILATION [None]
  - PNEUMONIA PRIMARY ATYPICAL [None]
